FAERS Safety Report 11477666 (Version 1)
Quarter: 2015Q3

REPORT INFORMATION
  Report Type: Spontaneous
  Country: US (occurrence: US)
  Receive Date: 20150909
  Receipt Date: 20150909
  Transmission Date: 20151125
  Serious: No
  Sender: FDA-Public Use
  Company Number: US-JAZZ-2014-US-009147

PATIENT
  Age: 14 Year
  Sex: Male
  Weight: 72.56 kg

DRUGS (11)
  1. ABILIFY [Concomitant]
     Active Substance: ARIPIPRAZOLE
     Indication: AFFECTIVE DISORDER
  2. BUSPAR [Concomitant]
     Active Substance: BUSPIRONE HYDROCHLORIDE
     Indication: ANXIETY
     Dosage: 15 MG, BID
     Route: 048
  3. LAMICTAL [Concomitant]
     Active Substance: LAMOTRIGINE
     Dosage: 300 MG, BID
     Route: 048
  4. BUSPAR [Concomitant]
     Active Substance: BUSPIRONE HYDROCHLORIDE
     Indication: AFFECTIVE DISORDER
  5. XYREM [Suspect]
     Active Substance: SODIUM OXYBATE
     Indication: SOMNOLENCE
  6. XYREM [Suspect]
     Active Substance: SODIUM OXYBATE
     Indication: NARCOLEPSY
  7. LAMICTAL [Concomitant]
     Active Substance: LAMOTRIGINE
     Dosage: 200 MG, FIRST DOSE
     Route: 048
  8. ABILIFY [Concomitant]
     Active Substance: ARIPIPRAZOLE
     Indication: ANXIETY
     Dosage: 15 MG, BID
     Route: 048
  9. LAMICTAL [Concomitant]
     Active Substance: LAMOTRIGINE
     Dosage: 300 MG, SECOND DOSE
     Route: 048
  10. LAMICTAL [Concomitant]
     Active Substance: LAMOTRIGINE
     Indication: SEIZURE
     Dosage: 200 MG, BID
     Route: 048
  11. XYREM [Suspect]
     Active Substance: SODIUM OXYBATE
     Indication: CATAPLEXY
     Dosage: 2.25 G, BID
     Route: 048
     Dates: start: 201406

REACTIONS (2)
  - Anticonvulsant drug level decreased [Not Recovered/Not Resolved]
  - Product use issue [Unknown]

NARRATIVE: CASE EVENT DATE: 201407
